FAERS Safety Report 7295348-X (Version None)
Quarter: 2011Q1

REPORT INFORMATION
  Report Type: 
  Country: None (occurrence: None)
  Receive Date: 20110216
  Receipt Date: 20110204
  Transmission Date: 20110831
  Serious: Yes (Death, Other)
  Sender: FDA-Public Use
  Company Number: GB-RANBAXY-2011R1-41767

PATIENT
  Age: 88 Year
  Sex: Female

DRUGS (13)
  1. METRONIDAZOLE [Suspect]
     Indication: CHOLECYSTITIS
     Dosage: 500 MG, UNK
     Route: 042
     Dates: start: 20090909
  2. TAZOCIN [Suspect]
     Dosage: 4.5 G, TID
     Route: 042
     Dates: start: 20090910, end: 20090914
  3. TAZOCIN [Suspect]
     Indication: CHOLECYSTITIS
     Dosage: 4.5 G, 1 TOTAL
     Route: 042
     Dates: start: 20090909, end: 20090909
  4. CLOPIDOGREL [Concomitant]
     Indication: PRODUCT USED FOR UNKNOWN INDICATION
     Dosage: 75 MG, QD
     Route: 065
  5. NICORANDIL [Concomitant]
     Indication: PRODUCT USED FOR UNKNOWN INDICATION
     Dosage: 10 MG, BID
     Route: 065
  6. PARACETAMOL [Concomitant]
     Indication: PRODUCT USED FOR UNKNOWN INDICATION
     Dosage: 1 G, AS NECESSARY
     Route: 065
  7. SIMVASTATIN [Concomitant]
     Indication: PRODUCT USED FOR UNKNOWN INDICATION
     Dosage: 40 MG, QD
     Route: 065
  8. ISOSORBIDE MONONITRATE [Concomitant]
     Indication: PRODUCT USED FOR UNKNOWN INDICATION
     Dosage: 50 MG, QD
     Route: 065
  9. AMOXICILLIN [Suspect]
     Indication: CHOLECYSTITIS
     Dosage: 1 G, UNK
     Route: 042
     Dates: start: 20090909
  10. HYPROMELLOSE [Concomitant]
     Indication: PRODUCT USED FOR UNKNOWN INDICATION
     Dosage: 1 DF, QID
     Route: 047
  11. ENOXAPARIN SODIUM [Concomitant]
     Indication: PRODUCT USED FOR UNKNOWN INDICATION
     Dosage: 40 MG, UNK
     Route: 058
  12. LEVOTHYROXINE SODIUM [Concomitant]
     Indication: PRODUCT USED FOR UNKNOWN INDICATION
     Dosage: 150 UG, QD
     Route: 065
  13. BISOPROLOL [Concomitant]
     Indication: PRODUCT USED FOR UNKNOWN INDICATION
     Dosage: 1.25 MG, QD
     Route: 065

REACTIONS (11)
  - WEIGHT DECREASED [None]
  - CLOSTRIDIAL INFECTION [None]
  - ABDOMINAL PAIN LOWER [None]
  - DIARRHOEA [None]
  - BLOOD PRESSURE DECREASED [None]
  - HYPOPHAGIA [None]
  - ANAEMIA [None]
  - MALAISE [None]
  - CYANOSIS [None]
  - GENERAL PHYSICAL HEALTH DETERIORATION [None]
  - ASTHENIA [None]
